FAERS Safety Report 15401759 (Version 2)
Quarter: 2018Q3

REPORT INFORMATION
  Report Type: Spontaneous
  Country: ES (occurrence: ES)
  Receive Date: 20180919
  Receipt Date: 20180927
  Transmission Date: 20181010
  Serious: Yes (Hospitalization)
  Sender: FDA-Public Use
  Company Number: PHHY2018ES099696

PATIENT
  Age: 87 Year
  Sex: Female

DRUGS (4)
  1. PROMETAX [Suspect]
     Active Substance: RIVASTIGMINE
     Dosage: 13.3 MG, QD
     Route: 062
     Dates: end: 20180911
  2. PROMETAX [Suspect]
     Active Substance: RIVASTIGMINE
     Indication: DEMENTIA ALZHEIMER^S TYPE
     Dosage: 4.6 MG, QD (DURING 2 MONTHS)
     Route: 062
  3. PROMETAX [Suspect]
     Active Substance: RIVASTIGMINE
     Dosage: 9.5 MG, QD (DURING 2 MONTHS)
     Route: 062
  4. ESCITALOPRAM [Concomitant]
     Active Substance: ESCITALOPRAM OXALATE
     Indication: ANXIETY
     Route: 065

REACTIONS (3)
  - Vertigo [Recovering/Resolving]
  - Hallucination [Recovered/Resolved]
  - Vomiting [Recovered/Resolved]
